FAERS Safety Report 15565673 (Version 3)
Quarter: 2019Q1

REPORT INFORMATION
  Report Type: Report from Study
  Country: US (occurrence: US)
  Receive Date: 20181030
  Receipt Date: 20190219
  Transmission Date: 20190417
  Serious: Yes (Hospitalization, Other)
  Sender: FDA-Public Use
  Company Number: PHEH2018US045011

PATIENT
  Age: 51 Year
  Sex: Female

DRUGS (3)
  1. ASPIRIN. [Concomitant]
     Active Substance: ASPIRIN
     Indication: PRODUCT USED FOR UNKNOWN INDICATION
     Dosage: UNK
     Route: 065
  2. GILENYA [Suspect]
     Active Substance: FINGOLIMOD HYDROCHLORIDE
     Dosage: 0.5 MG, QD
     Route: 048
     Dates: start: 20180201
  3. GILENYA [Suspect]
     Active Substance: FINGOLIMOD HYDROCHLORIDE
     Indication: MULTIPLE SCLEROSIS
     Dosage: 0.5 MG, QD
     Route: 048
     Dates: start: 201801

REACTIONS (18)
  - Heart rate increased [Recovered/Resolved]
  - Speech disorder [Unknown]
  - Asthenia [Not Recovered/Not Resolved]
  - Blood pressure increased [Recovered/Resolved]
  - Brain scan abnormal [Unknown]
  - Decreased appetite [Not Recovered/Not Resolved]
  - Depression [Recovered/Resolved]
  - Dyspnoea exertional [Not Recovered/Not Resolved]
  - Rectal haemorrhage [Recovered/Resolved]
  - Hypoaesthesia [Unknown]
  - Bowel movement irregularity [Not Recovered/Not Resolved]
  - Stress [Unknown]
  - Fatigue [Not Recovered/Not Resolved]
  - Anxiety [Recovered/Resolved]
  - Vertigo [Not Recovered/Not Resolved]
  - Movement disorder [Not Recovered/Not Resolved]
  - White blood cell count decreased [Unknown]
  - Headache [Not Recovered/Not Resolved]

NARRATIVE: CASE EVENT DATE: 201801
